FAERS Safety Report 16252015 (Version 2)
Quarter: 2019Q2

REPORT INFORMATION
  Report Type: Spontaneous
  Country: BR (occurrence: BR)
  Receive Date: 20190429
  Receipt Date: 20190514
  Transmission Date: 20190711
  Serious: Yes (Death, Hospitalization, Other)
  Sender: FDA-Public Use
  Company Number: BR-PFIZER INC-2019178981

PATIENT
  Age: 65 Year
  Sex: Male

DRUGS (2)
  1. XARELTO [Concomitant]
     Active Substance: RIVAROXABAN
  2. LIPITOR [Suspect]
     Active Substance: ATORVASTATIN CALCIUM
     Indication: HYPERCHOLESTEROLAEMIA
     Dosage: UNK

REACTIONS (5)
  - Sepsis [Fatal]
  - Venous occlusion [Recovered/Resolved]
  - Thrombosis [Recovered/Resolved]
  - Eschar [Not Recovered/Not Resolved]
  - Cerebrovascular accident [Recovered/Resolved]
